FAERS Safety Report 25262371 (Version 1)
Quarter: 2025Q2

REPORT INFORMATION
  Report Type: Report from Study
  Country: AR (occurrence: AR)
  Receive Date: 20250502
  Receipt Date: 20250502
  Transmission Date: 20250716
  Serious: Yes (Hospitalization)
  Sender: ABBVIE
  Company Number: AR-ABBVIE-6256787

PATIENT
  Age: 53 Year
  Sex: Female

DRUGS (1)
  1. RINVOQ [Suspect]
     Active Substance: UPADACITINIB
     Indication: Rheumatoid arthritis
     Dosage: RINVOQ 15MG X 30 TABLETS
     Route: 048
     Dates: start: 20211118

REACTIONS (1)
  - Gastrointestinal viral infection [Not Recovered/Not Resolved]

NARRATIVE: CASE EVENT DATE: 20250416
